FAERS Safety Report 20763201 (Version 5)
Quarter: 2023Q1

REPORT INFORMATION
  Report Type: Spontaneous
  Country: US (occurrence: US)
  Receive Date: 20220428
  Receipt Date: 20230217
  Transmission Date: 20230418
  Serious: Yes (Other)
  Sender: FDA-Public Use
  Company Number: US-PFIZER INC-202101359238

PATIENT
  Age: 71 Year
  Sex: Male
  Weight: 73.48 kg

DRUGS (2)
  1. INLYTA [Suspect]
     Active Substance: AXITINIB
     Indication: Renal cancer
     Dosage: 5 MG, DAILY
  2. KEYTRUDA [Concomitant]
     Active Substance: PEMBROLIZUMAB
     Dosage: GOES FOR AN INFUSION EVERY 3 WEEKS

REACTIONS (6)
  - Hypothyroidism [Unknown]
  - Hyperthyroidism [Recovered/Resolved]
  - Diarrhoea [Not Recovered/Not Resolved]
  - Weight decreased [Not Recovered/Not Resolved]
  - Neoplasm progression [Recovered/Resolved]
  - Asthenia [Recovered/Resolved]
